FAERS Safety Report 4477393-2 (Version None)
Quarter: 2004Q4

REPORT INFORMATION
  Report Type: 
  Country: None (occurrence: None)
  Receive Date: 20041018
  Receipt Date: 20040330
  Transmission Date: 20050328
  Serious: Yes (Hospitalization)
  Sender: FDA-Public Use
  Company Number: FR-BRISTOL-MYERS SQUIBB COMPANY-12553723

PATIENT
  Age: 45 Year
  Sex: Female

DRUGS (6)
  1. HOLOXAN [Suspect]
     Indication: CERVIX CANCER METASTATIC
     Route: 042
     Dates: start: 20040317, end: 20040320
  2. UROMITEXAN [Suspect]
     Indication: CERVIX CANCER METASTATIC
     Dates: start: 20040301, end: 20040301
  3. CISPLATIN [Concomitant]
     Route: 042
     Dates: start: 20030801, end: 20031201
  4. XANAX [Concomitant]
  5. PRIMPERAN INJ [Concomitant]
  6. AMOXAPINE [Concomitant]

REACTIONS (4)
  - PROTEINURIA [None]
  - RENAL FAILURE ACUTE [None]
  - RENAL TUBULAR DISORDER [None]
  - ULTRASOUND SCAN ABNORMAL [None]
